FAERS Safety Report 7288068-9 (Version None)
Quarter: 2011Q1

REPORT INFORMATION
  Report Type: 
  Country: None (occurrence: None)
  Receive Date: 20110208
  Receipt Date: 20110208
  Transmission Date: 20110831
  Serious: Yes (Hospitalization)
  Sender: FDA-Public Use
  Company Number: None

PATIENT
  Sex: Male
  Weight: 104 kg

DRUGS (2)
  1. RITUXIMAB (MOAB C2B8 ANTI CD20 CHIMERIC) [Suspect]
     Dosage: 375 MG
     Dates: end: 20110110
  2. FLUDARABINE PHOSPHATE [Suspect]
     Dosage: 27 MG
     Dates: end: 20100114

REACTIONS (2)
  - ANAEMIA [None]
  - LEUKOPENIA [None]
